FAERS Safety Report 13286177 (Version 2)
Quarter: 2017Q1

REPORT INFORMATION
  Report Type: Report from Study
  Country: US (occurrence: US)
  Receive Date: 20170301
  Receipt Date: 20170307
  Transmission Date: 20170428
  Serious: Yes (Death)
  Sender: FDA-Public Use
  Company Number: US-ACTELION-A-US2016-144489

PATIENT
  Age: 84 Year
  Sex: Male

DRUGS (7)
  1. UPTRAVI [Suspect]
     Active Substance: SELEXIPAG
     Dosage: 400 MCG, BID
     Route: 048
  2. OPSUMIT [Suspect]
     Active Substance: MACITENTAN
     Indication: PULMONARY ARTERIAL HYPERTENSION
     Dosage: 10 MG, QD
     Route: 048
     Dates: start: 20160620
  3. UPTRAVI [Suspect]
     Active Substance: SELEXIPAG
     Dosage: 800 MCG, BID
     Route: 048
  4. UPTRAVI [Suspect]
     Active Substance: SELEXIPAG
     Dosage: 600 UNK, UNK
     Route: 048
  5. UPTRAVI [Suspect]
     Active Substance: SELEXIPAG
     Indication: PULMONARY ARTERIAL HYPERTENSION
     Dosage: 200 MCG, BID
     Route: 048
     Dates: start: 20160914
  6. UPTRAVI [Suspect]
     Active Substance: SELEXIPAG
     Dosage: 1000 MCG, BID
     Route: 048
     Dates: start: 20161015
  7. ADCIRCA [Concomitant]
     Active Substance: TADALAFIL

REACTIONS (16)
  - Mouth haemorrhage [Unknown]
  - Activities of daily living impaired [Unknown]
  - Cardiac failure congestive [Fatal]
  - Gastrointestinal disorder [Unknown]
  - Peripheral swelling [Unknown]
  - Frustration tolerance decreased [Unknown]
  - Abdominal distension [Unknown]
  - Back injury [Unknown]
  - Dizziness [Unknown]
  - Hypoaesthesia [Unknown]
  - Fluid retention [Unknown]
  - Contusion [Unknown]
  - Unevaluable event [Unknown]
  - Pleural effusion [Unknown]
  - Pain [Unknown]
  - Abdominal discomfort [Unknown]

NARRATIVE: CASE EVENT DATE: 201610
